FAERS Safety Report 6976755-9 (Version None)
Quarter: 2010Q3

REPORT INFORMATION
  Report Type: 
  Country: None (occurrence: None)
  Receive Date: 20100910
  Receipt Date: 20100224
  Transmission Date: 20110219
  Serious: Yes (Life-Threatening, Hospitalization)
  Sender: FDA-Public Use
  Company Number: NO-PFIZER INC-2010019743

PATIENT
  Age: 53 Year
  Sex: Female

DRUGS (3)
  1. CYCLOKAPRON [Suspect]
     Indication: MENORRHAGIA
     Dosage: 2 TABLETS 3 TIMES PER DAY FOR 3-4 DAYS FOR HEAVY MENSTRUAL BLEEDING
     Route: 048
     Dates: start: 20070101, end: 20090101
  2. CETIRIZINE [Concomitant]
     Dosage: AS NECCESSARY
     Route: 048
  3. CIPRALEX [Concomitant]
     Indication: DEPRESSION
     Route: 048

REACTIONS (1)
  - ACUTE MYOCARDIAL INFARCTION [None]
